FAERS Safety Report 6007872-8 (Version None)
Quarter: 2008Q4

REPORT INFORMATION
  Report Type: 
  Country: None (occurrence: None)
  Receive Date: 20081217
  Receipt Date: 20080707
  Transmission Date: 20090506
  Serious: No
  Sender: FDA-Public Use
  Company Number: US-ASTRAZENECA-2008UW13609

PATIENT
  Age: 53 Year
  Sex: Female
  Weight: 113.9 kg

DRUGS (9)
  1. CRESTOR [Suspect]
     Indication: BLOOD CHOLESTEROL INCREASED
     Route: 048
     Dates: start: 20070101
  2. PERCOCET [Concomitant]
  3. CYMBALTA [Concomitant]
  4. FLEXERIL [Concomitant]
  5. ULTRAM ER [Concomitant]
  6. SYNTHROID [Concomitant]
  7. PREMARIN [Concomitant]
  8. ELAVIL [Concomitant]
  9. MACROBID [Concomitant]

REACTIONS (1)
  - VENTRICULAR DYSFUNCTION [None]
